FAERS Safety Report 21329012 (Version 1)
Quarter: 2022Q3

REPORT INFORMATION
  Report Type: Spontaneous
  Country: US (occurrence: US)
  Receive Date: 20220913
  Receipt Date: 20220913
  Transmission Date: 20221026
  Serious: Yes (Other)
  Sender: FDA-Public Use
  Company Number: US-BAYER-2022A121678

PATIENT
  Sex: Female

DRUGS (4)
  1. ASPIRIN [Suspect]
     Active Substance: ASPIRIN
     Indication: Product used for unknown indication
     Route: 048
  2. CALCIUM CITRATE [Suspect]
     Active Substance: CALCIUM CITRATE
  3. CLOZAPINE [Suspect]
     Active Substance: CLOZAPINE
  4. TYLENOL [Suspect]
     Active Substance: ACETAMINOPHEN

REACTIONS (2)
  - Foreign body in throat [Unknown]
  - Product use complaint [None]
